FAERS Safety Report 16349273 (Version 3)
Quarter: 2020Q4

REPORT INFORMATION
  Report Type: Spontaneous
  Country: GB (occurrence: GB)
  Receive Date: 20190523
  Receipt Date: 20201202
  Transmission Date: 20210113
  Serious: Yes (Hospitalization, Other)
  Sender: FDA-Public Use
  Company Number: GB-BRISTOL-MYERS SQUIBB COMPANY-BMS-2018-094096

PATIENT
  Age: 67 Year
  Sex: Male

DRUGS (4)
  1. PROPRANOLOL [Concomitant]
     Active Substance: PROPRANOLOL HYDROCHLORIDE
     Indication: ESSENTIAL TREMOR
     Dosage: UNK
     Route: 065
  2. WARFARIN SODIUM. [Suspect]
     Active Substance: WARFARIN SODIUM
     Indication: ATRIAL FIBRILLATION
     Dosage: UNK
     Route: 065
  3. WARFARIN SODIUM. [Suspect]
     Active Substance: WARFARIN SODIUM
     Indication: ANTICOAGULANT THERAPY
  4. LATANOPROST. [Concomitant]
     Active Substance: LATANOPROST
     Indication: NORMAL TENSION GLAUCOMA
     Dosage: UNK
     Route: 065

REACTIONS (7)
  - Eye haemorrhage [Unknown]
  - Product appearance confusion [Recovered/Resolved]
  - International normalised ratio increased [Recovered/Resolved]
  - Accidental overdose [Recovered/Resolved]
  - Visual acuity reduced [Not Recovered/Not Resolved]
  - Medication error [Recovered/Resolved]
  - Angle closure glaucoma [Recovering/Resolving]
